FAERS Safety Report 23682857 (Version 1)
Quarter: 2024Q1

REPORT INFORMATION
  Report Type: Spontaneous
  Country: US (occurrence: None)
  Receive Date: 20240328
  Receipt Date: 20240328
  Transmission Date: 20240409
  Serious: Yes (Other)
  Sender: FDA-Public Use
  Company Number: US-ROCHE-3530582

PATIENT
  Sex: Male

DRUGS (2)
  1. HEMLIBRA [Suspect]
     Active Substance: EMICIZUMAB-KXWH
     Indication: Factor VIII deficiency
     Dosage: STRENGTH- 105MG/0.7ML, 60MG/0.4 ML
     Route: 058
     Dates: start: 201208
  2. ADVATE [Concomitant]
     Active Substance: ANTIHEMOPHILIC FACTOR, HUMAN RECOMBINANT

REACTIONS (2)
  - Cerebrovascular accident [Unknown]
  - Ischaemia [Unknown]
